FAERS Safety Report 10171016 (Version 1)
Quarter: 2014Q2

REPORT INFORMATION
  Report Type: Spontaneous
  Country: US (occurrence: None)
  Receive Date: 20140513
  Receipt Date: 20140513
  Transmission Date: 20141212
  Serious: No
  Sender: FDA-Public Use
  Company Number: None

PATIENT
  Age: 37 Year
  Sex: Female
  Weight: 98.88 kg

DRUGS (1)
  1. PARAGARD [Suspect]
     Dates: start: 20050201

REACTIONS (2)
  - Complication of device removal [None]
  - Device breakage [None]
